FAERS Safety Report 19906244 (Version 1)
Quarter: 2021Q4

REPORT INFORMATION
  Report Type: Spontaneous
  Country: US (occurrence: US)
  Receive Date: 20211001
  Receipt Date: 20211001
  Transmission Date: 20220303
  Serious: Yes (Hospitalization, Other)
  Sender: FDA-Public Use
  Company Number: None

PATIENT
  Age: 82 Year
  Sex: Male
  Weight: 66.6 kg

DRUGS (7)
  1. REGEN-COV [Suspect]
     Active Substance: CASIRIVIMAB\IMDEVIMAB
     Indication: COVID-19
     Dosage: ?          OTHER FREQUENCY:ONCE;
     Route: 042
     Dates: start: 20210924, end: 20210924
  2. TOPROL XL [Concomitant]
     Active Substance: METOPROLOL SUCCINATE
     Dates: start: 20210925
  3. DECADRON [Concomitant]
     Active Substance: DEXAMETHASONE
     Dates: start: 20210925
  4. ALBUTEROL [Concomitant]
     Active Substance: ALBUTEROL
     Dates: start: 20210925
  5. REMDESIVIR [Concomitant]
     Active Substance: REMDESIVIR
     Dates: start: 20210925, end: 20210930
  6. GUAIFENESIN [Concomitant]
     Active Substance: GUAIFENESIN
     Dates: start: 20210925
  7. BARICITINIB [Concomitant]
     Active Substance: BARICITINIB
     Dates: start: 20210928

REACTIONS (5)
  - Dyspnoea [None]
  - Hypoxia [None]
  - Respiratory failure [None]
  - Pneumonia [None]
  - Pleural effusion [None]

NARRATIVE: CASE EVENT DATE: 20210925
